FAERS Safety Report 7405428-3 (Version None)
Quarter: 2011Q2

REPORT INFORMATION
  Report Type: 
  Country: None (occurrence: None)
  Receive Date: 20110411
  Receipt Date: 20110331
  Transmission Date: 20111010
  Serious: Yes (Hospitalization)
  Sender: FDA-Public Use
  Company Number: GB-US-EMD SERONO, INC.-7009770

PATIENT
  Sex: Female

DRUGS (8)
  1. INSULIN [Concomitant]
     Indication: DIABETES MELLITUS
  2. THYROXINE [Concomitant]
     Indication: HYPOTHYROIDISM
  3. METACHLORPROMIDE [Concomitant]
     Indication: MALAISE
  4. REBIF [Suspect]
     Indication: RELAPSING-REMITTING MULTIPLE SCLEROSIS
     Dates: start: 20100625, end: 20100101
  5. REBIF [Suspect]
     Dates: start: 20100101
  6. ACETAMINOPHEN AND CODEINE PHOSPHATE [Concomitant]
  7. IRON [Concomitant]
     Indication: ANAEMIA
  8. REBIF [Suspect]
     Dates: start: 20100810, end: 20100901

REACTIONS (8)
  - DIARRHOEA [None]
  - HAEMOGLOBIN DECREASED [None]
  - INJECTION SITE ERYTHEMA [None]
  - WHITE BLOOD CELL COUNT DECREASED [None]
  - DEFAECATION URGENCY [None]
  - URINARY TRACT INFECTION [None]
  - ORTHOPEDIC PROCEDURE [None]
  - INFLUENZA LIKE ILLNESS [None]
